FAERS Safety Report 7961789-8 (Version None)
Quarter: 2011Q4

REPORT INFORMATION
  Report Type: 
  Country: None (occurrence: None)
  Receive Date: 20111207
  Receipt Date: 20111207
  Transmission Date: 20120403
  Serious: Yes (Hospitalization)
  Sender: FDA-Public Use
  Company Number: None

PATIENT
  Sex: Female

DRUGS (3)
  1. IRINOTECAN HCL [Suspect]
     Indication: HEPATIC NEOPLASM MALIGNANT
     Dosage: 360MG
     Route: 042
     Dates: start: 20111108, end: 20111108
  2. FLUOROURACIL [Concomitant]
     Route: 042
  3. LEUCOVORIN CALCIUM [Concomitant]
     Indication: HEPATIC NEOPLASM MALIGNANT
     Dosage: 40MG
     Route: 040
     Dates: start: 20111108, end: 20111108

REACTIONS (1)
  - PANCYTOPENIA [None]
